FAERS Safety Report 9820423 (Version 2)
Quarter: 2014Q1

REPORT INFORMATION
  Report Type: Spontaneous
  Country: GB (occurrence: None)
  Receive Date: 20140114
  Receipt Date: 20140328
  Transmission Date: 20141002
  Serious: Yes (Death)
  Sender: FDA-Public Use
  Company Number: AUR-APL-2014-00225

PATIENT
  Age: 23 Year
  Sex: Female
  Weight: 74.2 kg

DRUGS (4)
  1. CITALOPRAM [Suspect]
     Indication: DEPRESSION
     Dosage: 1 D
     Route: 048
     Dates: start: 20131014, end: 20131022
  2. AMITRIPTYLINE (AMITRIPTYLINE) [Concomitant]
  3. SERTRALINE (SERTRALINE) [Concomitant]
  4. YASMIN (DROPIRENONE W/ETHINYLESTRADIOL) [Concomitant]

REACTIONS (3)
  - Completed suicide [None]
  - Gun shot wound [None]
  - Toxicologic test abnormal [None]
